FAERS Safety Report 5205878-X (Version None)
Quarter: 2007Q1

REPORT INFORMATION
  Report Type: 
  Country: None (occurrence: None)
  Receive Date: 20070111
  Receipt Date: 20070103
  Transmission Date: 20070707
  Serious: Yes (Other)
  Sender: FDA-Public Use
  Company Number: 2007UW00181

PATIENT
  Age: 42 Year
  Sex: Male
  Weight: 59 kg

DRUGS (4)
  1. SEROQUEL [Suspect]
     Indication: SLEEP DISORDER
     Route: 048
     Dates: end: 20070101
  2. SEROQUEL [Suspect]
     Indication: BIPOLAR DISORDER
     Route: 048
     Dates: end: 20070101
  3. ADVICOR [Concomitant]
  4. ALBUTEROL [Concomitant]

REACTIONS (3)
  - INSOMNIA [None]
  - SUICIDAL IDEATION [None]
  - WEIGHT DECREASED [None]
